FAERS Safety Report 10235805 (Version 1)
Quarter: 2014Q2

REPORT INFORMATION
  Report Type: Spontaneous
  Country: US (occurrence: US)
  Receive Date: 20140613
  Receipt Date: 20140613
  Transmission Date: 20141212
  Serious: No
  Sender: FDA-Public Use
  Company Number: US-BAYER-2014-085107

PATIENT
  Age: 20 Year
  Sex: Female

DRUGS (5)
  1. NIFEDIPINE [Suspect]
     Indication: PULMONARY ARTERIAL HYPERTENSION
     Dosage: PRE CONCEPTION
  2. NIFEDIPINE [Suspect]
     Indication: PULMONARY ARTERIAL HYPERTENSION
     Dosage: THROUGH THE EARLY SECOND TRIMESTER
  3. SILDENAFIL [Concomitant]
     Indication: PULMONARY HYPERTENSION
  4. EPOPROSTENOL [Concomitant]
     Indication: PULMONARY HYPERTENSION
     Dosage: INCREMENTALLY INCREASED WEEKLY TO A FINAL DOSE OF 25 NG/KG/MIN
     Route: 042
  5. HEPARIN [Concomitant]
     Dosage: 15000 U, BID
     Route: 058

REACTIONS (2)
  - Off label use [None]
  - Exposure during pregnancy [None]
